FAERS Safety Report 6262495-0 (Version None)
Quarter: 2009Q3

REPORT INFORMATION
  Report Type: 
  Country: None (occurrence: None)
  Receive Date: 20090709
  Receipt Date: 20090619
  Transmission Date: 20100115
  Serious: Yes (Hospitalization)
  Sender: FDA-Public Use
  Company Number: PHHO2009ES07979

PATIENT
  Sex: Male

DRUGS (13)
  1. CYCLOSPORINE [Suspect]
     Indication: RENAL TRANSPLANT
     Dosage: 100 MG, QD
     Route: 048
     Dates: start: 20030911
  2. CYCLOSPORINE [Suspect]
     Dosage: 75 MG, QD
     Route: 048
     Dates: start: 20030913
  3. DACLIZUMAB [Suspect]
     Indication: RENAL TRANSPLANT
     Dosage: 150 MG, QD
     Route: 042
     Dates: start: 20030911
  4. DACLIZUMAB [Suspect]
     Dosage: 75 MG/EVERY 2 WEEKS
     Route: 042
     Dates: start: 20030923
  5. MYCOPHENOLATE MOFETIL [Suspect]
     Indication: RENAL TRANSPLANT
     Dosage: 2 G, QD
     Route: 048
     Dates: start: 20030911
  6. MYCOPHENOLATE MOFETIL [Suspect]
     Dosage: 1 G, QD
     Route: 048
     Dates: start: 20030913
  7. PREDNISONE [Suspect]
     Indication: RENAL TRANSPLANT
     Dosage: 500 MG, QD
     Route: 042
     Dates: start: 20030911
  8. PREDNISONE [Suspect]
     Dosage: 20 MG, QD
     Route: 042
     Dates: start: 20030912
  9. PREDNISONE [Suspect]
     Dosage: 20 MG, QD
     Route: 048
     Dates: start: 20030913
  10. HALOPERIDOL [Concomitant]
  11. DOXAZOSIN MESYLATE [Concomitant]
  12. ALOPURINOL [Concomitant]
  13. AUGMENTIN [Concomitant]

REACTIONS (2)
  - DIABETES MELLITUS [None]
  - OSTEOMA [None]
